FAERS Safety Report 16648620 (Version 1)
Quarter: 2019Q3

REPORT INFORMATION
  Report Type: Report from Study
  Country: GB (occurrence: GB)
  Receive Date: 20190730
  Receipt Date: 20190730
  Transmission Date: 20191004
  Serious: Yes (Other)
  Sender: FDA-Public Use
  Company Number: GB-MYLANLABS-2019M1071747

PATIENT
  Sex: Male

DRUGS (4)
  1. DORNASE ALFA. [Concomitant]
     Active Substance: DORNASE ALFA
     Indication: CYSTIC FIBROSIS
     Dosage: 1 DF, QD (2.5MG/2.5ML)
     Route: 065
  2. PROMIXIN                           /00210601/ [Concomitant]
     Indication: CYSTIC FIBROSIS
     Dosage: 1E+006UNIT, ASD
  3. TOBI PODHALER [Suspect]
     Active Substance: TOBRAMYCIN
     Indication: CYSTIC FIBROSIS
     Dosage: 112 MG, BID
     Route: 055
  4. SODIUM CHLORIDE. [Concomitant]
     Active Substance: SODIUM CHLORIDE
     Indication: CYSTIC FIBROSIS
     Dosage: 45MG/5ML, ASD
     Route: 065

REACTIONS (1)
  - Pulmonary haemorrhage [Unknown]
